FAERS Safety Report 7108306-2 (Version None)
Quarter: 2010Q4

REPORT INFORMATION
  Report Type: 
  Country: None (occurrence: None)
  Receive Date: 20101117
  Receipt Date: 20101106
  Transmission Date: 20110411
  Serious: Yes (Other)
  Sender: FDA-Public Use
  Company Number: CA-JNJFOC-20101103199

PATIENT
  Sex: Female
  Weight: 57 kg

DRUGS (1)
  1. REMICADE [Suspect]
     Indication: UVEITIS
     Dosage: DOSAGE:100 MG/ML
     Route: 042

REACTIONS (4)
  - ABDOMINAL PAIN UPPER [None]
  - BRONCHITIS [None]
  - EYE EXCISION [None]
  - PNEUMONIA [None]
